FAERS Safety Report 24121460 (Version 1)
Quarter: 2024Q3

REPORT INFORMATION
  Report Type: Spontaneous
  Country: US (occurrence: None)
  Receive Date: 20240722
  Receipt Date: 20240722
  Transmission Date: 20241017
  Serious: No
  Sender: Public
  Company Number: None

PATIENT
  Sex: Female

DRUGS (3)
  1. REVATIO [Suspect]
     Active Substance: SILDENAFIL CITRATE
     Indication: Pulmonary arterial hypertension
     Dosage: FREQUENCY : 3 TIMES A DAY;?
     Route: 048
     Dates: start: 202406
  2. OPSUMIT [Concomitant]
     Active Substance: MACITENTAN
  3. WINREVAIR [Concomitant]
     Active Substance: SOTATERCEPT-CSRK

REACTIONS (3)
  - Weight increased [None]
  - Visual impairment [None]
  - Hypoacusis [None]
